FAERS Safety Report 6406480-4 (Version None)
Quarter: 2009Q4

REPORT INFORMATION
  Report Type: 
  Country: None (occurrence: None)
  Receive Date: 20091015
  Receipt Date: 20091005
  Transmission Date: 20100525
  Serious: Yes (Hospitalization, Congenital Anomaly, Other)
  Sender: FDA-Public Use
  Company Number: 2009US003699

PATIENT
  Sex: Female
  Weight: 0.8 kg

DRUGS (5)
  1. PROGRAF [Suspect]
     Indication: DRUG EXPOSURE DURING PREGNANCY
     Dosage: 2 MG, BID, ORAL
     Route: 048
  2. AZATHIOPRINE [Concomitant]
  3. PREDNISONE TAB [Concomitant]
  4. PRENATAL VITAMINS (VITAMIN D NOS, MINERALS NOS, VITAMIN B NOS) [Concomitant]
  5. LOSEC [Concomitant]

REACTIONS (7)
  - ABASIA [None]
  - AMBLYOPIA [None]
  - CAESAREAN SECTION [None]
  - CEREBRAL PALSY [None]
  - GASTROOESOPHAGEAL REFLUX DISEASE [None]
  - MATERNAL DRUGS AFFECTING FOETUS [None]
  - PREMATURE BABY [None]
